FAERS Safety Report 16469525 (Version 1)
Quarter: 2019Q2

REPORT INFORMATION
  Report Type: Spontaneous
  Country: US (occurrence: US)
  Receive Date: 20190624
  Receipt Date: 20190624
  Transmission Date: 20190711
  Serious: No
  Sender: FDA-Public Use
  Company Number: US-SA-2019SA165764

PATIENT
  Age: 41 Year
  Sex: Female
  Weight: 54.42 kg

DRUGS (3)
  1. LEMTRADA [Suspect]
     Active Substance: ALEMTUZUMAB
     Route: 041
  2. LEMTRADA [Suspect]
     Active Substance: ALEMTUZUMAB
     Dosage: UNK
     Route: 041
  3. LEMTRADA [Suspect]
     Active Substance: ALEMTUZUMAB
     Dosage: UNK
     Route: 041
     Dates: start: 20190501, end: 20190503

REACTIONS (3)
  - Therapeutic response decreased [Unknown]
  - CD4 lymphocytes decreased [Recovering/Resolving]
  - CD4 lymphocytes increased [Unknown]
